FAERS Safety Report 4310741-2 (Version None)
Quarter: 2004Q1

REPORT INFORMATION
  Report Type: 
  Country: None (occurrence: None)
  Receive Date: 20040303
  Receipt Date: 20040226
  Transmission Date: 20041129
  Serious: Yes (Death)
  Sender: FDA-Public Use
  Company Number: WAES 0402FRA00094

PATIENT
  Age: 92 Year
  Sex: Female

DRUGS (3)
  1. ACETAMINOPHEN AND TRAMADOL HYDROCHLORIDE [Concomitant]
     Indication: HIP ARTHROPLASTY
     Route: 048
     Dates: end: 20031101
  2. FOSAMAX [Suspect]
     Indication: OSTEOPOROSIS
     Route: 048
     Dates: start: 20030601, end: 20031101
  3. ASPIRIN [Concomitant]
     Route: 048
     Dates: end: 20031101

REACTIONS (2)
  - ACUTE MYELOID LEUKAEMIA [None]
  - PANCYTOPENIA [None]
